FAERS Safety Report 11273824 (Version 7)
Quarter: 2015Q3

REPORT INFORMATION
  Report Type: Report from Study
  Country: CN (occurrence: CN)
  Receive Date: 20150715
  Receipt Date: 20150925
  Transmission Date: 20151125
  Serious: Yes (Hospitalization)
  Sender: FDA-Public Use
  Company Number: CN-NAPPMUNDI-GBR-2015-0029365

PATIENT
  Age: 66 Year
  Sex: Male

DRUGS (108)
  1. BLINDED OXY CR TAB 20 MG [Suspect]
     Active Substance: OXYCODONE
     Indication: POST HERPETIC NEURALGIA
  2. BLINDED OXY CR TAB 10 MG [Suspect]
     Active Substance: OXYCODONE
     Dosage: OXY/OXN (25 MG, TOTAL DAILY DOSE), QD
     Route: 048
     Dates: start: 20150624, end: 20150624
  3. BLINDED OXY CR TAB 5 MG [Suspect]
     Active Substance: OXYCODONE
     Dosage: OXY/OXN (25 MG, TOTAL DAILY DOSE), QD
     Route: 048
     Dates: start: 20150624, end: 20150624
  4. BLINDED OXY CR TAB [Suspect]
     Active Substance: OXYCODONE
     Dosage: OXY/OXN (100 MG, TOTAL DAILY DOSE), BID
     Route: 048
     Dates: start: 20150622, end: 20150622
  5. BLINDED OXY CR TAB 10 MG [Suspect]
     Active Substance: OXYCODONE
     Dosage: OXY (40 MG, TOTAL DAILY DOSE), BID
     Route: 048
     Dates: start: 20150504, end: 20150519
  6. BLINDED OXYCODONE HCL/NALOXONE HCL CR TAB 40/20MG [Suspect]
     Active Substance: NALOXONE HYDROCHLORIDE\OXYCODONE HYDROCHLORIDE
     Dosage: OXY (40 MG, TOTAL DAILY DOSE), BID
     Route: 048
     Dates: start: 20150504, end: 20150519
  7. BLINDED OXYCODONE HCL/NALOXONE HCL CR TAB [Suspect]
     Active Substance: NALOXONE HYDROCHLORIDE\OXYCODONE HYDROCHLORIDE
     Dosage: OXY (40 MG, TOTAL DAILY DOSE), BID
     Route: 048
     Dates: start: 20150427, end: 20150503
  8. BLINDED OXY CR TAB [Suspect]
     Active Substance: OXYCODONE
     Dosage: OXY (30 MG, TOTAL DAILY DOSE), BID
     Route: 048
     Dates: start: 20150424, end: 20150426
  9. BLINDED OXY CR TAB 5 MG [Suspect]
     Active Substance: OXYCODONE
     Dosage: OXY (30 MG, TOTAL DAILY DOSE), BID
     Route: 048
     Dates: start: 20150424, end: 20150426
  10. BLINDED OXY CR TAB [Suspect]
     Active Substance: OXYCODONE
     Dosage: OXY (10 MG, Q12H)
     Route: 048
     Dates: start: 20150422, end: 20150423
  11. BLINDED OXYCODONE HCL/NALOXONE HCL CR TAB [Suspect]
     Active Substance: NALOXONE HYDROCHLORIDE\OXYCODONE HYDROCHLORIDE
     Dosage: OXY (10 MG, Q12H)
     Route: 048
     Dates: start: 20150422, end: 20150423
  12. BLINDED OXYCODONE HCL/NALOXONE HCL CR TAB 10/5MG [Suspect]
     Active Substance: NALOXONE HYDROCHLORIDE\OXYCODONE HYDROCHLORIDE
     Dosage: OXY (10 MG, Q12H)
     Route: 048
     Dates: start: 20150422, end: 20150423
  13. BLINDED OXYCODONE HCL/NALOXONE HCL CRTAB 5/2.5MG [Suspect]
     Active Substance: NALOXONE HYDROCHLORIDE\OXYCODONE HYDROCHLORIDE
     Dosage: OXY (10 MG, Q12H)
     Route: 048
     Dates: start: 20150422, end: 20150423
  14. VITAMIN B6 [Concomitant]
     Active Substance: PYRIDOXINE HYDROCHLORIDE
     Indication: SUPPLEMENTATION THERAPY
     Dosage: 0.2 G, UNK
     Route: 042
     Dates: start: 20150625, end: 20150705
  15. DIAZEPAM. [Concomitant]
     Active Substance: DIAZEPAM
     Indication: SEDATION
     Dosage: 5 MG, UNK
     Route: 030
     Dates: start: 20150705, end: 20150705
  16. BLINDED OXY CR TAB 40 MG [Suspect]
     Active Substance: OXYCODONE
     Dosage: OXY/OXN (50 MG, TOTAL DAILY DOSE), BID
     Route: 048
     Dates: start: 20150627, end: 20150708
  17. BLINDED OXY CR TAB 5 MG [Suspect]
     Active Substance: OXYCODONE
     Dosage: OXY/OXN (50 MG, TOTAL DAILY DOSE), BID
     Route: 048
     Dates: start: 20150627, end: 20150708
  18. BLINDED OXY CR TAB 10 MG [Suspect]
     Active Substance: OXYCODONE
     Dosage: OXY/OXN (50 MG, TOTAL DAILY DOSE), BID
     Route: 048
     Dates: start: 20150520, end: 20150621
  19. BLINDED OXYCODONE HCL/NALOXONE HCL CR TAB [Suspect]
     Active Substance: NALOXONE HYDROCHLORIDE\OXYCODONE HYDROCHLORIDE
     Dosage: OXY/OXN (50 MG, TOTAL DAILY DOSE), BID
     Route: 048
     Dates: start: 20150520, end: 20150621
  20. BLINDED OXYCODONE HCL/NALOXONE HCL CR TAB 10/5MG [Suspect]
     Active Substance: NALOXONE HYDROCHLORIDE\OXYCODONE HYDROCHLORIDE
     Dosage: OXY/OXN (50 MG, TOTAL DAILY DOSE), BID
     Route: 048
     Dates: start: 20150520, end: 20150621
  21. BLINDED OXY CR TAB 20 MG [Suspect]
     Active Substance: OXYCODONE
     Dosage: OXY (40 MG, TOTAL DAILY DOSE), BID
     Route: 048
     Dates: start: 20150504, end: 20150519
  22. BLINDED OXY CR TAB 40 MG [Suspect]
     Active Substance: OXYCODONE
     Dosage: OXY (40 MG, TOTAL DAILY DOSE), BID
     Route: 048
     Dates: start: 20150504, end: 20150519
  23. BLINDED OXYCODONE HCL/NALOXONE HCL CR TAB [Suspect]
     Active Substance: NALOXONE HYDROCHLORIDE\OXYCODONE HYDROCHLORIDE
     Dosage: OXY (40 MG, TOTAL DAILY DOSE), BID
     Route: 048
     Dates: start: 20150504, end: 20150519
  24. BLINDED OXYCODONE HCL/NALOXONE HCL CRTAB 5/2.5MG [Suspect]
     Active Substance: NALOXONE HYDROCHLORIDE\OXYCODONE HYDROCHLORIDE
     Dosage: OXY (40 MG, TOTAL DAILY DOSE), BID
     Route: 048
     Dates: start: 20150504, end: 20150519
  25. BLINDED OXYCODONE HCL/NALOXONE HCL CR TAB 40/20MG [Suspect]
     Active Substance: NALOXONE HYDROCHLORIDE\OXYCODONE HYDROCHLORIDE
     Dosage: OXY (40 MG, TOTAL DAILY DOSE), BID
     Route: 048
     Dates: start: 20150427, end: 20150503
  26. BLINDED OXYCODONE HCL/NALOXONE HCL CR TAB 10/5MG [Suspect]
     Active Substance: NALOXONE HYDROCHLORIDE\OXYCODONE HYDROCHLORIDE
     Dosage: OXY (30 MG, TOTAL DAILY DOSE), BID
     Route: 048
     Dates: start: 20150424, end: 20150426
  27. BLINDED OXYCODONE HCL/NALOXONE HCL CR TAB20/10MG [Suspect]
     Active Substance: NALOXONE HYDROCHLORIDE\OXYCODONE HYDROCHLORIDE
     Dosage: OXY (30 MG, TOTAL DAILY DOSE), BID
     Route: 048
     Dates: start: 20150424, end: 20150426
  28. BLINDED OXY CR TAB 5 MG [Suspect]
     Active Substance: OXYCODONE
     Dosage: OXY (10 MG, Q12H)
     Route: 048
     Dates: start: 20150422, end: 20150423
  29. PREGABALIN. [Suspect]
     Active Substance: PREGABALIN
     Dosage: 75 MG, UNK
     Route: 048
     Dates: start: 20150411, end: 20150621
  30. MORPHINE SULFATE. [Suspect]
     Active Substance: MORPHINE SULFATE
     Indication: PRODUCT USED FOR UNKNOWN INDICATION
     Dosage: 100 MG, UNK
     Route: 065
     Dates: start: 20150622
  31. OLANZAPINE. [Concomitant]
     Active Substance: OLANZAPINE
     Indication: PSYCHOTIC DISORDER
     Dosage: 10 MG, UNK
     Route: 048
     Dates: start: 20150705
  32. BLINDED OXY CR TAB 20 MG [Suspect]
     Active Substance: OXYCODONE
     Dosage: OXY/OXN (25 MG, TOTAL DAILY DOSE), QD
     Route: 048
     Dates: start: 20150624, end: 20150624
  33. BLINDED OXYCODONE HCL/NALOXONE HCL CR TAB [Suspect]
     Active Substance: NALOXONE HYDROCHLORIDE\OXYCODONE HYDROCHLORIDE
     Dosage: OXY/OXN (25 MG, TOTAL DAILY DOSE), QD
     Route: 048
     Dates: start: 20150624, end: 20150624
  34. BLINDED OXYCODONE HCL/NALOXONE HCL CR TAB 40/20MG [Suspect]
     Active Substance: NALOXONE HYDROCHLORIDE\OXYCODONE HYDROCHLORIDE
     Dosage: OXY/OXN (25 MG, TOTAL DAILY DOSE), QD
     Route: 048
     Dates: start: 20150624, end: 20150624
  35. BLINDED OXYCODONE HCL/NALOXONE HCL CR TAB20/10MG [Suspect]
     Active Substance: NALOXONE HYDROCHLORIDE\OXYCODONE HYDROCHLORIDE
     Dosage: OXY/OXN (25 MG, TOTAL DAILY DOSE), QD
     Route: 048
     Dates: start: 20150624, end: 20150624
  36. BLINDED OXY CR TAB 10 MG [Suspect]
     Active Substance: OXYCODONE
     Dosage: OXY/OXN (100 MG, TOTAL DAILY DOSE), BID
     Route: 048
     Dates: start: 20150622, end: 20150622
  37. BLINDED OXY CR TAB 20 MG [Suspect]
     Active Substance: OXYCODONE
     Dosage: OXY/OXN (100 MG, TOTAL DAILY DOSE), BID
     Route: 048
     Dates: start: 20150622, end: 20150622
  38. BLINDED OXY CR TAB 5 MG [Suspect]
     Active Substance: OXYCODONE
     Dosage: OXY/OXN (100 MG, TOTAL DAILY DOSE), BID
     Route: 048
     Dates: start: 20150622, end: 20150622
  39. BLINDED OXYCODONE HCL/NALOXONE HCL CR TAB [Suspect]
     Active Substance: NALOXONE HYDROCHLORIDE\OXYCODONE HYDROCHLORIDE
     Dosage: OXY/OXN (100 MG, TOTAL DAILY DOSE), BID
     Route: 048
     Dates: start: 20150622, end: 20150622
  40. BLINDED OXYCODONE HCL/NALOXONE HCL CR TAB 10/5MG [Suspect]
     Active Substance: NALOXONE HYDROCHLORIDE\OXYCODONE HYDROCHLORIDE
     Dosage: OXY/OXN (100 MG, TOTAL DAILY DOSE), BID
     Route: 048
     Dates: start: 20150622, end: 20150622
  41. BLINDED OXY CR TAB [Suspect]
     Active Substance: OXYCODONE
     Dosage: OXY/OXN (50 MG, TOTAL DAILY DOSE), BID
     Route: 048
     Dates: start: 20150520, end: 20150621
  42. BLINDED OXY CR TAB [Suspect]
     Active Substance: OXYCODONE
     Dosage: OXY (40 MG, TOTAL DAILY DOSE), BID
     Route: 048
     Dates: start: 20150427, end: 20150503
  43. BLINDED OXY CR TAB 5 MG [Suspect]
     Active Substance: OXYCODONE
     Dosage: OXY (40 MG, TOTAL DAILY DOSE), BID
     Route: 048
     Dates: start: 20150427, end: 20150503
  44. BLINDED OXYCODONE HCL/NALOXONE HCL CR TAB20/10MG [Suspect]
     Active Substance: NALOXONE HYDROCHLORIDE\OXYCODONE HYDROCHLORIDE
     Dosage: OXY (40 MG, TOTAL DAILY DOSE), BID
     Route: 048
     Dates: start: 20150427, end: 20150503
  45. BLINDED OXYCODONE HCL/NALOXONE HCL CRTAB 5/2.5MG [Suspect]
     Active Substance: NALOXONE HYDROCHLORIDE\OXYCODONE HYDROCHLORIDE
     Dosage: OXY (40 MG, TOTAL DAILY DOSE), BID
     Route: 048
     Dates: start: 20150427, end: 20150503
  46. BLINDED OXYCODONE HCL/NALOXONE HCL CR TAB [Suspect]
     Active Substance: NALOXONE HYDROCHLORIDE\OXYCODONE HYDROCHLORIDE
     Dosage: OXY (30 MG, TOTAL DAILY DOSE), BID
     Route: 048
     Dates: start: 20150424, end: 20150426
  47. LANSOPRAZOLE. [Concomitant]
     Active Substance: LANSOPRAZOLE
     Indication: PROPHYLAXIS
     Dosage: 30 MG, UNK
     Route: 042
     Dates: start: 20150625, end: 20150705
  48. VITAMIN B12 [Concomitant]
     Active Substance: CYANOCOBALAMIN
     Indication: NERVOUS SYSTEM DISORDER
     Dosage: 500 MCG, UNK
     Route: 030
     Dates: start: 20150705, end: 20150724
  49. BLINDED OXY CR TAB 5 MG [Suspect]
     Active Substance: OXYCODONE
     Indication: POST HERPETIC NEURALGIA
  50. BLINDED OXY CR TAB 40 MG [Suspect]
     Active Substance: OXYCODONE
     Dosage: OXY (40 MG, TOTAL DAILY DOSE), BID
     Route: 048
     Dates: start: 20150427, end: 20150503
  51. BLINDED OXY CR TAB 40 MG [Suspect]
     Active Substance: OXYCODONE
     Dosage: OXY (30 MG, TOTAL DAILY DOSE), BID
     Route: 048
     Dates: start: 20150424, end: 20150426
  52. BLINDED OXY CR TAB 40 MG [Suspect]
     Active Substance: OXYCODONE
     Dosage: OXY (10 MG, Q12H)
     Route: 048
     Dates: start: 20150422, end: 20150423
  53. BLINDED OXYCODONE HCL/NALOXONE HCL CR TAB 40/20MG [Suspect]
     Active Substance: NALOXONE HYDROCHLORIDE\OXYCODONE HYDROCHLORIDE
     Dosage: OXY (10 MG, Q12H)
     Route: 048
     Dates: start: 20150422, end: 20150423
  54. DULOXETINE HYDROCHLORIDE. [Concomitant]
     Active Substance: DULOXETINE HYDROCHLORIDE
     Indication: PSYCHOTIC DISORDER
     Dosage: 30 MG, UNK
     Route: 048
     Dates: start: 20150705, end: 20150724
  55. BLINDED OXY CR TAB [Suspect]
     Active Substance: OXYCODONE
     Indication: POST HERPETIC NEURALGIA
  56. BLINDED OXY CR TAB 10 MG [Suspect]
     Active Substance: OXYCODONE
     Indication: POST HERPETIC NEURALGIA
  57. BLINDED OXYCODONE HCL/NALOXONE HCL CR TAB 10/5MG [Suspect]
     Active Substance: NALOXONE HYDROCHLORIDE\OXYCODONE HYDROCHLORIDE
     Indication: POST HERPETIC NEURALGIA
     Dosage: 25 MG, UNK
     Route: 048
     Dates: start: 20150709, end: 20150709
  58. BLINDED OXYCODONE HCL/NALOXONE HCL CR TAB20/10MG [Suspect]
     Active Substance: NALOXONE HYDROCHLORIDE\OXYCODONE HYDROCHLORIDE
     Indication: POST HERPETIC NEURALGIA
     Dosage: 25 MG, UNK
     Route: 048
     Dates: start: 20150709, end: 20150709
  59. BLINDED OXY CR TAB [Suspect]
     Active Substance: OXYCODONE
     Dosage: OXY/OXN (50 MG, TOTAL DAILY DOSE), BID
     Route: 048
     Dates: start: 20150627, end: 20150708
  60. BLINDED OXY CR TAB [Suspect]
     Active Substance: OXYCODONE
     Dosage: OXY/OXN (25 MG, TOTAL DAILY DOSE), QD
     Route: 048
     Dates: start: 20150624, end: 20150624
  61. BLINDED OXYCODONE HCL/NALOXONE HCL CR TAB 10/5MG [Suspect]
     Active Substance: NALOXONE HYDROCHLORIDE\OXYCODONE HYDROCHLORIDE
     Dosage: OXY/OXN (25 MG, TOTAL DAILY DOSE), QD
     Route: 048
     Dates: start: 20150624, end: 20150624
  62. BLINDED OXYCODONE HCL/NALOXONE HCL CRTAB 5/2.5MG [Suspect]
     Active Substance: NALOXONE HYDROCHLORIDE\OXYCODONE HYDROCHLORIDE
     Dosage: OXY/OXN (25 MG, TOTAL DAILY DOSE), QD
     Route: 048
     Dates: start: 20150624, end: 20150624
  63. BLINDED OXY CR TAB [Suspect]
     Active Substance: OXYCODONE
     Dosage: OXY (40 MG, TOTAL DAILY DOSE), BID
     Route: 048
     Dates: start: 20150504, end: 20150519
  64. BLINDED OXYCODONE HCL/NALOXONE HCL CR TAB20/10MG [Suspect]
     Active Substance: NALOXONE HYDROCHLORIDE\OXYCODONE HYDROCHLORIDE
     Dosage: OXY (40 MG, TOTAL DAILY DOSE), BID
     Route: 048
     Dates: start: 20150504, end: 20150519
  65. BLINDED OXY CR TAB 10 MG [Suspect]
     Active Substance: OXYCODONE
     Dosage: OXY (40 MG, TOTAL DAILY DOSE), BID
     Route: 048
     Dates: start: 20150427, end: 20150503
  66. BLINDED OXY CR TAB 20 MG [Suspect]
     Active Substance: OXYCODONE
     Dosage: OXY (30 MG, TOTAL DAILY DOSE), BID
     Route: 048
     Dates: start: 20150424, end: 20150426
  67. BLINDED OXYCODONE HCL/NALOXONE HCL CR TAB 40/20MG [Suspect]
     Active Substance: NALOXONE HYDROCHLORIDE\OXYCODONE HYDROCHLORIDE
     Dosage: OXY (30 MG, TOTAL DAILY DOSE), BID
     Route: 048
     Dates: start: 20150424, end: 20150426
  68. BLINDED OXY CR TAB 20 MG [Suspect]
     Active Substance: OXYCODONE
     Dosage: OXY (10 MG, Q12H)
     Route: 048
     Dates: start: 20150422, end: 20150423
  69. BLINDED OXY CR TAB 40 MG [Suspect]
     Active Substance: OXYCODONE
     Indication: POST HERPETIC NEURALGIA
  70. BLINDED OXYCODONE HCL/NALOXONE HCL CR TAB [Suspect]
     Active Substance: NALOXONE HYDROCHLORIDE\OXYCODONE HYDROCHLORIDE
     Indication: POST HERPETIC NEURALGIA
     Dosage: 25 MG, UNK
     Route: 048
     Dates: start: 20150709, end: 20150709
  71. BLINDED OXYCODONE HCL/NALOXONE HCL CR TAB 40/20MG [Suspect]
     Active Substance: NALOXONE HYDROCHLORIDE\OXYCODONE HYDROCHLORIDE
     Indication: POST HERPETIC NEURALGIA
     Dosage: 25 MG, UNK
     Route: 048
     Dates: start: 20150709, end: 20150709
  72. BLINDED OXY CR TAB 10 MG [Suspect]
     Active Substance: OXYCODONE
     Dosage: OXY/OXN (50 MG, TOTAL DAILY DOSE), BID
     Route: 048
     Dates: start: 20150627, end: 20150708
  73. BLINDED OXYCODONE HCL/NALOXONE HCL CR TAB 40/20MG [Suspect]
     Active Substance: NALOXONE HYDROCHLORIDE\OXYCODONE HYDROCHLORIDE
     Dosage: OXY/OXN (50 MG, TOTAL DAILY DOSE), BID
     Route: 048
     Dates: start: 20150627, end: 20150708
  74. BLINDED OXYCODONE HCL/NALOXONE HCL CR TAB20/10MG [Suspect]
     Active Substance: NALOXONE HYDROCHLORIDE\OXYCODONE HYDROCHLORIDE
     Dosage: OXY/OXN (50 MG, TOTAL DAILY DOSE), BID
     Route: 048
     Dates: start: 20150627, end: 20150708
  75. BLINDED OXYCODONE HCL/NALOXONE HCL CRTAB 5/2.5MG [Suspect]
     Active Substance: NALOXONE HYDROCHLORIDE\OXYCODONE HYDROCHLORIDE
     Dosage: OXY/OXN (50 MG, TOTAL DAILY DOSE), BID
     Route: 048
     Dates: start: 20150627, end: 20150708
  76. BLINDED OXY CR TAB 20 MG [Suspect]
     Active Substance: OXYCODONE
     Dosage: OXY/OXN (50 MG, TOTAL DAILY DOSE), BID
     Route: 048
     Dates: start: 20150520, end: 20150621
  77. BLINDED OXYCODONE HCL/NALOXONE HCL CR TAB 10/5MG [Suspect]
     Active Substance: NALOXONE HYDROCHLORIDE\OXYCODONE HYDROCHLORIDE
     Dosage: OXY (40 MG, TOTAL DAILY DOSE), BID
     Route: 048
     Dates: start: 20150504, end: 20150519
  78. BLINDED OXYCODONE HCL/NALOXONE HCL CR TAB 10/5MG [Suspect]
     Active Substance: NALOXONE HYDROCHLORIDE\OXYCODONE HYDROCHLORIDE
     Dosage: OXY (40 MG, TOTAL DAILY DOSE), BID
     Route: 048
     Dates: start: 20150427, end: 20150503
  79. BLINDED OXYCODONE HCL/NALOXONE HCL CRTAB 5/2.5MG [Suspect]
     Active Substance: NALOXONE HYDROCHLORIDE\OXYCODONE HYDROCHLORIDE
     Dosage: OXY (30 MG, TOTAL DAILY DOSE), BID
     Route: 048
     Dates: start: 20150424, end: 20150426
  80. BLINDED OXY CR TAB 10 MG [Suspect]
     Active Substance: OXYCODONE
     Dosage: OXY (10 MG, Q12H)
     Route: 048
     Dates: start: 20150422, end: 20150423
  81. PREGABALIN. [Suspect]
     Active Substance: PREGABALIN
     Dosage: 600 MG, UNK
     Route: 048
     Dates: start: 20150622, end: 20150622
  82. MAGNESIUM [Concomitant]
     Active Substance: MAGNESIUM
     Indication: PSYCHOTIC DISORDER
     Dosage: 0.25 G, UNK
     Route: 048
     Dates: start: 20150705
  83. BLINDED OXYCODONE HCL/NALOXONE HCL CRTAB 5/2.5MG [Suspect]
     Active Substance: NALOXONE HYDROCHLORIDE\OXYCODONE HYDROCHLORIDE
     Indication: POST HERPETIC NEURALGIA
     Dosage: 25 MG, UNK
     Route: 048
     Dates: start: 20150709, end: 20150709
  84. BLINDED OXYCODONE HCL/NALOXONE HCL CR TAB [Suspect]
     Active Substance: NALOXONE HYDROCHLORIDE\OXYCODONE HYDROCHLORIDE
     Dosage: OXY/OXN (50 MG, TOTAL DAILY DOSE), BID
     Route: 048
     Dates: start: 20150627, end: 20150708
  85. BLINDED OXY CR TAB 5 MG [Suspect]
     Active Substance: OXYCODONE
     Dosage: OXY/OXN (50 MG, TOTAL DAILY DOSE), BID
     Route: 048
     Dates: start: 20150520, end: 20150621
  86. BLINDED OXYCODONE HCL/NALOXONE HCL CR TAB20/10MG [Suspect]
     Active Substance: NALOXONE HYDROCHLORIDE\OXYCODONE HYDROCHLORIDE
     Dosage: OXY/OXN (50 MG, TOTAL DAILY DOSE), BID
     Route: 048
     Dates: start: 20150520, end: 20150621
  87. BLINDED OXYCODONE HCL/NALOXONE HCL CRTAB 5/2.5MG [Suspect]
     Active Substance: NALOXONE HYDROCHLORIDE\OXYCODONE HYDROCHLORIDE
     Dosage: OXY/OXN (50 MG, TOTAL DAILY DOSE), BID
     Route: 048
     Dates: start: 20150520, end: 20150621
  88. BLINDED OXY CR TAB 20 MG [Suspect]
     Active Substance: OXYCODONE
     Dosage: OXY (40 MG, TOTAL DAILY DOSE), BID
     Route: 048
     Dates: start: 20150427, end: 20150503
  89. BLINDED OXYCODONE HCL/NALOXONE HCL CR TAB20/10MG [Suspect]
     Active Substance: NALOXONE HYDROCHLORIDE\OXYCODONE HYDROCHLORIDE
     Dosage: OXY (10 MG, Q12H)
     Route: 048
     Dates: start: 20150422, end: 20150423
  90. PREGABALIN. [Suspect]
     Active Substance: PREGABALIN
     Indication: HERPES ZOSTER
     Dosage: 75 MG, UNK
     Route: 048
     Dates: start: 20150623, end: 20150624
  91. VITAMIN C [Concomitant]
     Active Substance: ASCORBIC ACID
     Indication: SUPPLEMENTATION THERAPY
     Dosage: 2 G, UNK
     Route: 042
     Dates: start: 20150625, end: 20150705
  92. ALPRAZOLAM. [Concomitant]
     Active Substance: ALPRAZOLAM
     Indication: SLEEP DISORDER
     Dosage: 0.4 UNK, UNK
     Route: 048
     Dates: start: 20150705
  93. MONOSIALOTETRAHEXOSYLGANGLIOSIDE SODIUM [Concomitant]
     Indication: CARDIOVASCULAR DISORDER
     Dosage: 60 MG, UNK
     Route: 042
     Dates: start: 20150702, end: 20150705
  94. LIDOCAINE. [Concomitant]
     Active Substance: LIDOCAINE
     Indication: ANALGESIC THERAPY
     Dosage: UNK
     Dates: start: 20150702
  95. VITAMIN B1 [Concomitant]
     Active Substance: THIAMINE HYDROCHLORIDE
     Indication: NERVOUS SYSTEM DISORDER
     Dosage: 10 MG, UNK
     Route: 030
     Dates: start: 20150705, end: 20150724
  96. BLINDED OXY CR TAB 20 MG [Suspect]
     Active Substance: OXYCODONE
     Dosage: OXY/OXN (50 MG, TOTAL DAILY DOSE), BID
     Route: 048
     Dates: start: 20150627, end: 20150708
  97. BLINDED OXYCODONE HCL/NALOXONE HCL CR TAB 10/5MG [Suspect]
     Active Substance: NALOXONE HYDROCHLORIDE\OXYCODONE HYDROCHLORIDE
     Dosage: OXY/OXN (50 MG, TOTAL DAILY DOSE), BID
     Route: 048
     Dates: start: 20150627, end: 20150708
  98. BLINDED OXY CR TAB 40 MG [Suspect]
     Active Substance: OXYCODONE
     Dosage: OXY/OXN (25 MG, TOTAL DAILY DOSE), QD
     Route: 048
     Dates: start: 20150624, end: 20150624
  99. BLINDED OXY CR TAB 40 MG [Suspect]
     Active Substance: OXYCODONE
     Dosage: OXY/OXN (100 MG, TOTAL DAILY DOSE), BID
     Route: 048
     Dates: start: 20150622, end: 20150622
  100. BLINDED OXYCODONE HCL/NALOXONE HCL CR TAB 40/20MG [Suspect]
     Active Substance: NALOXONE HYDROCHLORIDE\OXYCODONE HYDROCHLORIDE
     Dosage: OXY/OXN (100 MG, TOTAL DAILY DOSE), BID
     Route: 048
     Dates: start: 20150622, end: 20150622
  101. BLINDED OXYCODONE HCL/NALOXONE HCL CR TAB20/10MG [Suspect]
     Active Substance: NALOXONE HYDROCHLORIDE\OXYCODONE HYDROCHLORIDE
     Dosage: OXY/OXN (100 MG, TOTAL DAILY DOSE), BID
     Route: 048
     Dates: start: 20150622, end: 20150622
  102. BLINDED OXYCODONE HCL/NALOXONE HCL CRTAB 5/2.5MG [Suspect]
     Active Substance: NALOXONE HYDROCHLORIDE\OXYCODONE HYDROCHLORIDE
     Dosage: OXY/OXN (100 MG, TOTAL DAILY DOSE), BID
     Route: 048
     Dates: start: 20150622, end: 20150622
  103. BLINDED OXY CR TAB 40 MG [Suspect]
     Active Substance: OXYCODONE
     Dosage: OXY/OXN (50 MG, TOTAL DAILY DOSE), BID
     Route: 048
     Dates: start: 20150520, end: 20150621
  104. BLINDED OXYCODONE HCL/NALOXONE HCL CR TAB 40/20MG [Suspect]
     Active Substance: NALOXONE HYDROCHLORIDE\OXYCODONE HYDROCHLORIDE
     Dosage: OXY/OXN (50 MG, TOTAL DAILY DOSE), BID
     Route: 048
     Dates: start: 20150520, end: 20150621
  105. BLINDED OXY CR TAB 5 MG [Suspect]
     Active Substance: OXYCODONE
     Dosage: OXY (40 MG, TOTAL DAILY DOSE), BID
     Route: 048
     Dates: start: 20150504, end: 20150519
  106. BLINDED OXY CR TAB 10 MG [Suspect]
     Active Substance: OXYCODONE
     Dosage: OXY (30 MG, TOTAL DAILY DOSE), BID
     Route: 048
     Dates: start: 20150424, end: 20150426
  107. ALPROSTADIL. [Concomitant]
     Active Substance: ALPROSTADIL
     Indication: CARDIOVASCULAR DISORDER
     Dosage: 10 MCG, UNK
     Route: 042
     Dates: start: 20150626, end: 20150705
  108. ALPRAZOLAM. [Concomitant]
     Active Substance: ALPRAZOLAM
     Dosage: 0.4 MG, UNK
     Route: 048
     Dates: start: 20150626, end: 20150630

REACTIONS (3)
  - Depression [Not Recovered/Not Resolved]
  - Cerebral disorder [Recovered/Resolved with Sequelae]
  - Overdose [Recovered/Resolved]
